FAERS Safety Report 25708436 (Version 3)
Quarter: 2025Q4

REPORT INFORMATION
  Report Type: Spontaneous
  Country: US (occurrence: US)
  Receive Date: 20250821
  Receipt Date: 20251217
  Transmission Date: 20260118
  Serious: Yes (Other)
  Sender: ALEXION PHARMACEUTICALS
  Company Number: US-AstraZeneca-CH-00933027AP

PATIENT
  Sex: Female

DRUGS (1)
  1. SYMBICORT [Suspect]
     Active Substance: BUDESONIDE\FORMOTEROL FUMARATE DIHYDRATE
     Dosage: 160 MICROGRAM
     Route: 065

REACTIONS (6)
  - Incorrect dose administered [Unknown]
  - Extra dose administered [Unknown]
  - Product dose omission issue [Unknown]
  - Cerebrovascular accident [Unknown]
  - Headache [Unknown]
  - Device delivery system issue [Unknown]
